FAERS Safety Report 18216910 (Version 1)
Quarter: 2020Q3

REPORT INFORMATION
  Report Type: Spontaneous
  Country: IE (occurrence: IE)
  Receive Date: 20200901
  Receipt Date: 20200901
  Transmission Date: 20201103
  Serious: Yes (Hospitalization, Other)
  Sender: FDA-Public Use
  Company Number: IE-LUPIN PHARMACEUTICALS INC.-2020-05246

PATIENT
  Age: 32 Year
  Sex: Male

DRUGS (30)
  1. METRONIDAZOLE. [Suspect]
     Active Substance: METRONIDAZOLE
     Indication: ACANTHAMOEBA INFECTION
     Dosage: 500 MILLIGRAM, TID
     Route: 065
  2. MILTEFOSINE [Suspect]
     Active Substance: MILTEFOSINE
     Indication: ACANTHAMOEBA INFECTION
     Dosage: 50 MILLIGRAM, TID
     Route: 048
  3. CARBOPLATIN. [Suspect]
     Active Substance: CARBOPLATIN
     Indication: HODGKIN^S DISEASE
     Dosage: UNK (3 CYCLES AS A PART OF ICE REGIMEN)
     Route: 065
  4. FLUCONAZOLE. [Suspect]
     Active Substance: FLUCONAZOLE
     Indication: ACANTHAMOEBA INFECTION
     Dosage: 12 MILLIGRAM/KILOGRAM, QD
     Route: 048
  5. PROCARBAZINE [Suspect]
     Active Substance: PROCARBAZINE
     Indication: HODGKIN^S DISEASE
     Dosage: UNK (2 CYCLES AS A PART OF BEACOPP REGIMEN)
     Route: 065
  6. CARMUSTINE. [Suspect]
     Active Substance: CARMUSTINE
     Indication: HODGKIN^S DISEASE
     Dosage: UNK (AS A PART OF BEAM REGIMEN)
     Route: 065
  7. PHENOXYMETHYLPENICILLIN [Concomitant]
     Active Substance: PENICILLIN V
     Indication: EVIDENCE BASED TREATMENT
     Dosage: 333 MILLIGRAM
     Route: 065
  8. SULFAMETHOXAZOLE AND TRIMETHOPRIM [Suspect]
     Active Substance: SULFAMETHOXAZOLE\TRIMETHOPRIM
     Indication: ACANTHAMOEBA INFECTION
     Dosage: 5 MILLIGRAM/KILOGRAM
     Route: 065
  9. CYCLOPHOSPHAMIDE. [Suspect]
     Active Substance: CYCLOPHOSPHAMIDE
     Indication: HODGKIN^S DISEASE
     Dosage: UNK (2 CYCLES AS A PART OF BEACOPP REGIMEN)
     Route: 065
  10. MELPHALAN. [Suspect]
     Active Substance: MELPHALAN
     Indication: HODGKIN^S DISEASE
     Dosage: UNK (AS A PART OF BEAM REGIMEN)
     Route: 065
  11. ALEMTUZUMAB [Suspect]
     Active Substance: ALEMTUZUMAB
     Indication: HODGKIN^S DISEASE
     Dosage: UNK
     Route: 065
  12. ADRIAMYCIN [Suspect]
     Active Substance: DOXORUBICIN HYDROCHLORIDE
     Dosage: UNK (2 CYCLES AS A PART OF BEACOPP REGIMEN)
     Route: 065
  13. BLEOMYCIN [Suspect]
     Active Substance: BLEOMYCIN SULFATE
     Dosage: UNK (2 CYCLES AS A PART OF BEACOPP REGIMEN)
     Route: 065
  14. PREDNISOLONE. [Suspect]
     Active Substance: PREDNISOLONE
     Indication: GRAFT VERSUS HOST DISEASE IN SKIN
     Dosage: UNK (THE PATIENT RECEIVED 2 CYCLES AS A PART OF BEACOPP REGIMEN)
     Route: 065
  15. ETOPOSIDE. [Suspect]
     Active Substance: ETOPOSIDE
     Dosage: UNK (3 CYCLES AS A PART OF ICE REGIMEN)
     Route: 065
  16. ADRIAMYCIN [Suspect]
     Active Substance: DOXORUBICIN HYDROCHLORIDE
     Indication: HODGKIN^S DISEASE
     Dosage: UNK (2 CYCLES AS A PART OF ABVD REGIMEN)
     Route: 065
  17. DACARBAZINE. [Suspect]
     Active Substance: DACARBAZINE
     Indication: HODGKIN^S DISEASE
     Dosage: UNK (2 CYCLES AS A PART OF ABVD REGIMEN)
     Route: 065
  18. ONCOVIN [Suspect]
     Active Substance: VINCRISTINE SULFATE
     Indication: HODGKIN^S DISEASE
     Dosage: UNK (2 CYCLES AS A PART OF BEACOPP REGIMEN)
     Route: 065
  19. CYTARABINE. [Suspect]
     Active Substance: CYTARABINE
     Indication: HODGKIN^S DISEASE
     Dosage: UNK (AS A PART OF BEAM REGIMEN)
     Route: 065
  20. PENTAMIDINE ISETHIONATE. [Suspect]
     Active Substance: PENTAMIDINE ISETHIONATE
     Indication: ACANTHAMOEBA INFECTION
     Dosage: 4 MILLIGRAM/KILOGRAM
     Route: 065
  21. ETOPOSIDE. [Suspect]
     Active Substance: ETOPOSIDE
     Dosage: UNK (AS A PART OF BEAM REGIMEN)
     Route: 065
  22. VINBLASTINE [Suspect]
     Active Substance: VINBLASTINE
     Indication: HODGKIN^S DISEASE
     Dosage: UNK (2 CYCLES AS A PART OF ABVD REGIMEN)
     Route: 065
  23. PREDNISOLONE. [Suspect]
     Active Substance: PREDNISOLONE
     Indication: HODGKIN^S DISEASE
     Dosage: 10 MILLIGRAM, QD
     Route: 065
  24. IFOSFAMIDE. [Suspect]
     Active Substance: IFOSFAMIDE
     Indication: HODGKIN^S DISEASE
     Dosage: UNK (3 CYCLES AS A PART OF ICE REGIMEN)
     Route: 065
  25. ETOPOSIDE. [Suspect]
     Active Substance: ETOPOSIDE
     Indication: HODGKIN^S DISEASE
     Dosage: UNK (2 CYCLES AS A PART OF BEACOPP REGIMEN)
     Route: 065
  26. BRENTUXIMAB VEDOTIN [Suspect]
     Active Substance: BRENTUXIMAB VEDOTIN
     Indication: HODGKIN^S DISEASE
     Dosage: UNK
     Route: 065
  27. VALACICLOVIR [Concomitant]
     Active Substance: VALACYCLOVIR HYDROCHLORIDE
     Indication: EVIDENCE BASED TREATMENT
     Dosage: 500 MILLIGRAM, QD
     Route: 065
  28. AZITHROMYCIN ANHYDROUS. [Suspect]
     Active Substance: AZITHROMYCIN ANHYDROUS
     Indication: ACANTHAMOEBA INFECTION
     Dosage: 250 MILLIGRAM, QD
     Route: 048
  29. BLEOMYCIN [Suspect]
     Active Substance: BLEOMYCIN SULFATE
     Indication: HODGKIN^S DISEASE
     Dosage: UNK (2 CYCLES AS A PART OF ABVD REGIMEN)
     Route: 065
  30. ATOVAQUONE. [Concomitant]
     Active Substance: ATOVAQUONE
     Indication: EVIDENCE BASED TREATMENT
     Dosage: 750 MILLIGRAM
     Route: 065

REACTIONS (11)
  - Drug intolerance [Unknown]
  - Quadrantanopia [Recovering/Resolving]
  - Alexia [Recovering/Resolving]
  - Nausea [Unknown]
  - Encephalitis [Recovering/Resolving]
  - Vasogenic cerebral oedema [Recovering/Resolving]
  - Gastrointestinal disorder [Unknown]
  - Disorientation [Recovering/Resolving]
  - Necrosis [Recovering/Resolving]
  - Acanthamoeba infection [Recovering/Resolving]
  - Aphasia [Recovering/Resolving]
